FAERS Safety Report 23091012 (Version 1)
Quarter: 2023Q4

REPORT INFORMATION
  Report Type: Spontaneous
  Country: US (occurrence: US)
  Receive Date: 20231020
  Receipt Date: 20231020
  Transmission Date: 20240110
  Serious: Yes (Hospitalization)
  Sender: FDA-Public Use
  Company Number: US-BRISTOL-MYERS SQUIBB COMPANY-2023-150038

PATIENT
  Age: 85 Year
  Sex: Female

DRUGS (1)
  1. REVLIMID [Suspect]
     Active Substance: LENALIDOMIDE
     Indication: Diffuse large B-cell lymphoma
     Dosage: DOSE: 10 MG; FREQUENCY: ONCE DAILY FOR 21 DAYS, AND 7 DAYS OFF.
     Route: 048
     Dates: start: 20210922

REACTIONS (2)
  - Adverse event [Unknown]
  - Off label use [Unknown]
